FAERS Safety Report 6288365-X (Version None)
Quarter: 2009Q3

REPORT INFORMATION
  Report Type: 
  Country: None (occurrence: None)
  Receive Date: 20090729
  Receipt Date: 20090717
  Transmission Date: 20100115
  Serious: Yes (Death, Hospitalization, Other)
  Sender: FDA-Public Use
  Company Number: KR-PFIZER INC-2009238136

PATIENT
  Age: 75 Year

DRUGS (4)
  1. LYRICA [Suspect]
     Indication: POST HERPETIC NEURALGIA
     Dosage: 75 MG, 1X/DAY
     Route: 048
     Dates: start: 20090622, end: 20090701
  2. BISMUTH SUBCITRATE TRIPOTASSIUM/RANITIDINE HCL/SUCRALFATE [Concomitant]
     Dosage: UNK
  3. EPERISONE HYDROCHLORIDE [Concomitant]
     Dosage: UNK
  4. MELOXICAM [Concomitant]
     Dosage: UNK

REACTIONS (3)
  - CEREBRAL INFARCTION [None]
  - DEATH [None]
  - DIZZINESS [None]
